FAERS Safety Report 9885343 (Version 1)
Quarter: 2014Q1

REPORT INFORMATION
  Report Type: Spontaneous
  Country: US (occurrence: US)
  Receive Date: 20140210
  Receipt Date: 20140210
  Transmission Date: 20141002
  Serious: No
  Sender: FDA-Public Use
  Company Number: US-PFIZER INC-2014035960

PATIENT
  Age: 67 Year
  Sex: Male
  Weight: 101.13 kg

DRUGS (3)
  1. INLYTA [Suspect]
     Indication: RENAL CELL CARCINOMA
     Dosage: 5 MG, 2X/DAY
     Route: 048
     Dates: start: 20140125
  2. METOPROLOL [Concomitant]
     Dosage: 100 MG, 2X/DAY
  3. AMLODIPINE [Concomitant]
     Dosage: 5 MG, 1X/DAY

REACTIONS (2)
  - Hypertension [Unknown]
  - Blood creatinine increased [Unknown]
